FAERS Safety Report 17680470 (Version 1)
Quarter: 2020Q2

REPORT INFORMATION
  Report Type: Spontaneous
  Country: US (occurrence: US)
  Receive Date: 20200417
  Receipt Date: 20200417
  Transmission Date: 20200714
  Serious: Yes (Other)
  Sender: FDA-Public Use
  Company Number: US-ASTRAZENECA-2020SE51001

PATIENT
  Sex: Female

DRUGS (6)
  1. GARLIC. [Concomitant]
     Active Substance: GARLIC
  2. IBRANCE [Suspect]
     Active Substance: PALBOCICLIB
     Indication: BREAST CANCER FEMALE
     Route: 048
     Dates: start: 20200302
  3. XARELTO [Concomitant]
     Active Substance: RIVAROXABAN
  4. COD LIVER OIL [Concomitant]
     Active Substance: COD LIVER OIL
  5. FASLODEX [Suspect]
     Active Substance: FULVESTRANT
     Route: 030
  6. ECHINACEA [Concomitant]
     Active Substance: ECHINACEA, UNSPECIFIED

REACTIONS (7)
  - Taste disorder [Unknown]
  - Rib fracture [Unknown]
  - Hypoaesthesia [Unknown]
  - Decreased appetite [Unknown]
  - Fall [Unknown]
  - Platelet count decreased [Unknown]
  - Balance disorder [Unknown]
